FAERS Safety Report 12772036 (Version 1)
Quarter: 2016Q3

REPORT INFORMATION
  Report Type: Spontaneous
  Country: US (occurrence: US)
  Receive Date: 20160922
  Receipt Date: 20160922
  Transmission Date: 20161109
  Serious: No
  Sender: FDA-Public Use
  Company Number: US-BAYER-2016-178830

PATIENT
  Age: 70 Year
  Sex: Female

DRUGS (3)
  1. FINACEA [Suspect]
     Active Substance: AZELAIC ACID
     Indication: ROSACEA
     Dosage: UNK
  2. FINACEA [Suspect]
     Active Substance: AZELAIC ACID
     Indication: SKIN DISORDER
  3. FINACEA [Suspect]
     Active Substance: AZELAIC ACID
     Indication: SEBORRHOEA

REACTIONS (3)
  - Seborrhoea [None]
  - Skin disorder [None]
  - Off label use [None]
